FAERS Safety Report 23244492 (Version 1)
Quarter: 2023Q4

REPORT INFORMATION
  Report Type: Spontaneous
  Country: US (occurrence: US)
  Receive Date: 20231130
  Receipt Date: 20231130
  Transmission Date: 20240109
  Serious: Yes (Other)
  Sender: FDA-Public Use
  Company Number: US-SANOFI-01853394

PATIENT

DRUGS (1)
  1. CAMPATH [Suspect]
     Active Substance: ALEMTUZUMAB

REACTIONS (3)
  - Transplant failure [Unknown]
  - Neoplasm [Unknown]
  - Organ transplant [Unknown]
